FAERS Safety Report 14826959 (Version 1)
Quarter: 2018Q2

REPORT INFORMATION
  Report Type: Spontaneous
  Country: US (occurrence: US)
  Receive Date: 20180417
  Receipt Date: 20180417
  Transmission Date: 20180711
  Serious: Yes (Hospitalization)
  Sender: FDA-Public Use
  Company Number: None

PATIENT
  Age: 56 Year
  Sex: Female

DRUGS (15)
  1. ONDANSETRON [Concomitant]
     Active Substance: ONDANSETRON
  2. DRONABINOL. [Concomitant]
     Active Substance: DRONABINOL
  3. LORAZEPAM. [Concomitant]
     Active Substance: LORAZEPAM
  4. DULOXETINE. [Concomitant]
     Active Substance: DULOXETINE
  5. CAPECITABINE 500 MG TAB [Suspect]
     Active Substance: CAPECITABINE
     Indication: SMALL INTESTINE CARCINOMA
     Dosage: 3 TAB (1500MG) QD X 14 PO
     Route: 048
     Dates: start: 201803, end: 201804
  6. PRILOSEC [Concomitant]
     Active Substance: OMEPRAZOLE MAGNESIUM
  7. HYDROCO/APAP [Concomitant]
     Active Substance: ACETAMINOPHEN\HYDROCODONE
  8. FLUDROCORT [Concomitant]
  9. POT CHLORIDE [Concomitant]
     Active Substance: POTASSIUM CHLORIDE
  10. SYNTHROID [Concomitant]
     Active Substance: LEVOTHYROXINE SODIUM
  11. DIPHEN/ATROP [Concomitant]
     Active Substance: ATROPINE SULFATE\DIPHENOXYLATE
  12. LIDO/PRILOSON CR [Concomitant]
  13. CITALOPRAM [Concomitant]
     Active Substance: CITALOPRAM HYDROBROMIDE
  14. TEMAZEPAM. [Concomitant]
     Active Substance: TEMAZEPAM
  15. LOPERAMIDE [Concomitant]
     Active Substance: LOPERAMIDE

REACTIONS (2)
  - Dehydration [None]
  - Mucosal inflammation [None]

NARRATIVE: CASE EVENT DATE: 20180410
